FAERS Safety Report 7133139-0 (Version None)
Quarter: 2010Q4

REPORT INFORMATION
  Report Type: 
  Country: None (occurrence: None)
  Receive Date: 20101202
  Receipt Date: 20101125
  Transmission Date: 20110411
  Serious: Yes (Other)
  Sender: FDA-Public Use
  Company Number: AU-PFIZER INC-2010146230

PATIENT
  Sex: Female

DRUGS (4)
  1. OGEN [Suspect]
     Indication: HORMONE REPLACEMENT THERAPY
  2. GENORAL [Suspect]
     Indication: HORMONE REPLACEMENT THERAPY
  3. PREMARIN [Suspect]
     Indication: HORMONE REPLACEMENT THERAPY
  4. ZOLOFT [Suspect]
     Indication: DEPRESSION

REACTIONS (6)
  - AFFECTIVE DISORDER [None]
  - BREAST DISCOMFORT [None]
  - BREAST PAIN [None]
  - DEPRESSION [None]
  - DRUG INEFFECTIVE [None]
  - MENTAL IMPAIRMENT [None]
